FAERS Safety Report 11105408 (Version 1)
Quarter: 2015Q2

REPORT INFORMATION
  Report Type: Not Available
  Country: US (occurrence: US)
  Receive Date: 20150512
  Receipt Date: 20150512
  Transmission Date: 20150821
  Serious: No
  Sender: FDA-Public Use
  Company Number: US-LUPIN PHARMACEUTICALS INC.-E2B_00003410

PATIENT
  Age: 83 Year
  Sex: Male
  Weight: 31.78 kg

DRUGS (3)
  1. NIACIN EXTENDED-RELEASE TABLET USP, 500 MG [Suspect]
     Active Substance: NIACIN
     Indication: HYPERCHOLESTEROLAEMIA
     Dates: start: 201503
  2. METOPROLOL [Concomitant]
     Active Substance: METOPROLOL
     Indication: PRODUCT USED FOR UNKNOWN INDICATION
     Route: 065
  3. ASPIRIN. [Concomitant]
     Active Substance: ASPIRIN
     Indication: PRODUCT USED FOR UNKNOWN INDICATION
     Route: 065

REACTIONS (1)
  - Memory impairment [Unknown]

NARRATIVE: CASE EVENT DATE: 20150328
